FAERS Safety Report 10531266 (Version 2)
Quarter: 2014Q4

REPORT INFORMATION
  Report Type: Report from Study
  Country: NL (occurrence: NL)
  Receive Date: 20141021
  Receipt Date: 20141021
  Transmission Date: 20150529
  Serious: Yes (Hospitalization)
  Sender: FDA-Public Use
  Company Number: NL-US-EMD SERONO, INC.-7258481

PATIENT
  Sex: Male

DRUGS (1)
  1. REBIF [Suspect]
     Active Substance: INTERFERON BETA-1A
     Indication: MULTIPLE SCLEROSIS
     Route: 058
     Dates: start: 20130925

REACTIONS (5)
  - Weight decreased [Unknown]
  - Hyperhidrosis [Unknown]
  - Injection site discolouration [Not Recovered/Not Resolved]
  - Pyrexia [Unknown]
  - Syncope [Unknown]
